FAERS Safety Report 11368278 (Version 1)
Quarter: 2015Q3

REPORT INFORMATION
  Report Type: Spontaneous
  Country: US (occurrence: US)
  Receive Date: 20150811
  Receipt Date: 20150811
  Transmission Date: 20151125
  Serious: No
  Sender: FDA-Public Use
  Company Number: US-ELI_LILLY_AND_COMPANY-US201403004116

PATIENT
  Sex: Male
  Weight: 104.31 kg

DRUGS (1)
  1. TESTOSTERONE. [Suspect]
     Active Substance: TESTOSTERONE
     Indication: HYPOGONADISM
     Dosage: 30 MG, QD
     Route: 062
     Dates: start: 20131120, end: 20140307

REACTIONS (3)
  - Pain [Recovered/Resolved]
  - Rash vesicular [Recovered/Resolved]
  - Skin exfoliation [Recovered/Resolved]
